FAERS Safety Report 16606962 (Version 1)
Quarter: 2019Q3

REPORT INFORMATION
  Report Type: Spontaneous
  Country: ES (occurrence: ES)
  Receive Date: 20190722
  Receipt Date: 20190722
  Transmission Date: 20191004
  Serious: Yes (Other)
  Sender: FDA-Public Use
  Company Number: ES-TEVA-2019-ES-1079897

PATIENT
  Age: 61 Year
  Sex: Female

DRUGS (9)
  1. METOTREXATO 2,5 MG COMPRIMIDO [Concomitant]
  2. HIDROCLOROTIAZIDA (1343A) [Concomitant]
     Active Substance: HYDROCHLOROTHIAZIDE
  3. APIXABAN 5 MG COMPRIMIDO [Concomitant]
  4. PAROXETINA 20 MG COMPRIMIDO [Suspect]
     Active Substance: PAROXETINE HYDROCHLORIDE
     Route: 048
     Dates: start: 20190622, end: 20190704
  5. ACIDO FOLICO [Concomitant]
     Active Substance: CYANOCOBALAMIN\FOLIC ACID\PYRIDOXINE HYDROCHLORIDE
  6. CALCIPOTRIOL + BETAMETASONA [Concomitant]
  7. FLECAINIDA NORMON 100 MG COMPRIMIDOS EFG , 60 COMPRIMIDOS (BLISTER AL/ [Concomitant]
  8. BISOPROLOL 10 MG COMPRIMIDO [Concomitant]
  9. GLUCOSAMINA 625 MG COMPRIMIDO [Concomitant]

REACTIONS (3)
  - Hallucination, auditory [Not Recovered/Not Resolved]
  - Hallucination, visual [Not Recovered/Not Resolved]
  - Dry mouth [Not Recovered/Not Resolved]

NARRATIVE: CASE EVENT DATE: 20190701
